FAERS Safety Report 10202863 (Version 1)
Quarter: 2014Q2

REPORT INFORMATION
  Report Type: Spontaneous
  Country: US (occurrence: US)
  Receive Date: 20140522
  Receipt Date: 20140522
  Transmission Date: 20141212
  Serious: No
  Sender: FDA-Public Use
  Company Number: US-SA-2014SA039959

PATIENT
  Age: 51 Year
  Sex: Female

DRUGS (2)
  1. LANTUS [Suspect]
     Indication: DIABETES MELLITUS
     Dosage: DOSE:30 UNIT(S)
     Route: 058
     Dates: start: 20130509
  2. LANTUS [Suspect]
     Indication: DIABETES MELLITUS
     Dosage: DOSE:40 UNIT(S)
     Route: 058

REACTIONS (2)
  - Rhinorrhoea [Not Recovered/Not Resolved]
  - Blood glucose abnormal [Unknown]
